FAERS Safety Report 18579708 (Version 3)
Quarter: 2021Q1

REPORT INFORMATION
  Report Type: Report from Study
  Country: CZ (occurrence: CZ)
  Receive Date: 20201204
  Receipt Date: 20210209
  Transmission Date: 20210419
  Serious: Yes (Life-Threatening, Hospitalization, Other)
  Sender: FDA-Public Use
  Company Number: CZ-AMGEN-CZECT2020192784

PATIENT
  Age: 52 Year
  Sex: Female

DRUGS (6)
  1. ERENUMAB [Suspect]
     Active Substance: ERENUMAB
     Indication: MIGRAINE
     Dosage: 70 MILLIGRAM, QMO
     Route: 058
     Dates: start: 20200831
  2. ALUTARD [HERBAL POLLEN NOS] [Concomitant]
     Dosage: 5 MILLILITER
     Route: 058
     Dates: start: 20191001
  3. ERENUMAB [Suspect]
     Active Substance: ERENUMAB
     Dosage: UNK
     Route: 058
     Dates: end: 20201119
  4. SUMATRIPTAN. [Concomitant]
     Active Substance: SUMATRIPTAN
     Dosage: 50 MILLIGRAM, AS NECESSARY
     Route: 065
     Dates: start: 200705
  5. INDOMETACIN [Concomitant]
     Active Substance: INDOMETHACIN
     Dosage: UNK, AS NECESSARY
     Route: 065
     Dates: start: 2015
  6. SORBIFER [FERROUS SULFATE] [Concomitant]
     Dosage: 1 DOSAGE FORM, QD
     Route: 065
     Dates: start: 20111101

REACTIONS (1)
  - Anaphylactic reaction [Recovered/Resolved]

NARRATIVE: CASE EVENT DATE: 20201119
